APPROVED DRUG PRODUCT: RAMIPRIL
Active Ingredient: RAMIPRIL
Strength: 2.5MG
Dosage Form/Route: CAPSULE;ORAL
Application: A078832 | Product #002 | TE Code: AB
Applicant: ZYDUS PHARMACEUTICALS USA INC
Approved: Sep 2, 2008 | RLD: No | RS: No | Type: RX